FAERS Safety Report 5283185-7 (Version None)
Quarter: 2007Q2

REPORT INFORMATION
  Report Type: 
  Country: None (occurrence: None)
  Receive Date: 20070402
  Receipt Date: 20070328
  Transmission Date: 20071010
  Serious: Yes (Other)
  Sender: FDA-Public Use
  Company Number: US-GLAXOSMITHKLINE-A0645040A

PATIENT

DRUGS (2)
  1. COREG [Suspect]
     Indication: ARRHYTHMIA
     Dosage: 25MG TWICE PER DAY
     Route: 048
  2. UNKNOWN [Concomitant]

REACTIONS (1)
  - ATRIAL FIBRILLATION [None]
